FAERS Safety Report 11128501 (Version 1)
Quarter: 2015Q2

REPORT INFORMATION
  Report Type: Spontaneous
  Country: IT (occurrence: IT)
  Receive Date: 20150521
  Receipt Date: 20150521
  Transmission Date: 20150821
  Serious: Yes (Other)
  Sender: FDA-Public Use
  Company Number: IT-HOSPIRA-2864002

PATIENT
  Age: 69 Year

DRUGS (1)
  1. OXALIPLATIN. [Suspect]
     Active Substance: OXALIPLATIN
     Indication: PRODUCT USED FOR UNKNOWN INDICATION
     Route: 042
     Dates: start: 20150413, end: 20150413

REACTIONS (3)
  - Flushing [Recovered/Resolved with Sequelae]
  - Hypoxia [Recovered/Resolved with Sequelae]
  - Eyelid oedema [Recovered/Resolved with Sequelae]

NARRATIVE: CASE EVENT DATE: 20150413
